FAERS Safety Report 6105420-5 (Version None)
Quarter: 2009Q1

REPORT INFORMATION
  Report Type: 
  Country: None (occurrence: None)
  Receive Date: 20090306
  Receipt Date: 20090226
  Transmission Date: 20090719
  Serious: Yes (Hospitalization, Other)
  Sender: FDA-Public Use
  Company Number: DE-NOVOPROD-284533

PATIENT
  Age: 71 Year
  Sex: Male
  Weight: 85 kg

DRUGS (13)
  1. LEVEMIR [Suspect]
     Indication: DIABETES MELLITUS
     Dosage: 14 U, QD
     Route: 058
     Dates: start: 20080101
  2. NOVORAPID [Suspect]
     Indication: DIABETES MELLITUS
     Dosage: 42 IU, QD
     Route: 058
     Dates: start: 20080101, end: 20080908
  3. CLOPIDOGREL [Concomitant]
     Dosage: 75 MG, QD
     Route: 048
     Dates: start: 20050801
  4. ENALAPRIL MALEATE [Concomitant]
     Dosage: 20 MG, QD
     Route: 048
     Dates: start: 20060101
  5. LERCANIDIPINE [Concomitant]
     Dosage: 10 MG, QD
     Route: 048
     Dates: start: 20060101
  6. MELPERONE [Concomitant]
     Dosage: 50 MG, QD
     Route: 048
     Dates: start: 20080401, end: 20080909
  7. MELPERONE [Concomitant]
     Route: 048
  8. OPIPRAMOL [Concomitant]
     Dosage: 50 MG, BID
     Route: 048
     Dates: start: 20070101, end: 20080906
  9. CYMBALTA [Concomitant]
     Dosage: 30 MG, QD
     Route: 048
     Dates: start: 20080909
  10. PENTOXYFYLLIN [Concomitant]
     Dosage: 600 MG, TID
     Route: 048
     Dates: start: 20050101
  11. PLETAL [Concomitant]
     Dosage: 50 MG, BID
     Route: 048
  12. TARGIN [Interacting]
     Dosage: 1 DF, BID
     Route: 048
     Dates: start: 20070101
  13. TARGIN [Interacting]
     Dosage: .5 DF, BID
     Route: 048

REACTIONS (5)
  - ANOREXIA [None]
  - CONDITION AGGRAVATED [None]
  - HYPOGLYCAEMIA [None]
  - VERTIGO [None]
  - WEIGHT DECREASED [None]
